FAERS Safety Report 13417942 (Version 3)
Quarter: 2017Q2

REPORT INFORMATION
  Report Type: Spontaneous
  Country: US (occurrence: US)
  Receive Date: 20170407
  Receipt Date: 20170426
  Transmission Date: 20170830
  Serious: Yes (Hospitalization, Other)
  Sender: FDA-Public Use
  Company Number: US-009507513-1702USA009838

PATIENT
  Age: 82 Year
  Sex: Female

DRUGS (3)
  1. NITRO-DUR [Suspect]
     Active Substance: NITROGLYCERIN
     Dosage: UNK
     Dates: start: 2012, end: 2014
  2. NITROGLYCERIN. [Suspect]
     Active Substance: NITROGLYCERIN
     Dosage: UNK
     Dates: start: 2014
  3. NITRO-DUR [Suspect]
     Active Substance: NITROGLYCERIN
     Dosage: 0.2 (NO UNITS PROVIDED), 12 HOURS ON AND 12 HOURS OFF, Q24H

REACTIONS (11)
  - Blood pressure increased [Unknown]
  - Chest discomfort [Unknown]
  - Adverse event [Unknown]
  - Stent placement [Unknown]
  - Chest discomfort [Unknown]
  - Anxiety [Unknown]
  - Anxiety [Unknown]
  - Tooth injury [Unknown]
  - Stent placement [Unknown]
  - Blood pressure increased [Unknown]
  - Road traffic accident [Unknown]

NARRATIVE: CASE EVENT DATE: 20160602
